FAERS Safety Report 9311107 (Version 1)
Quarter: 2013Q2

REPORT INFORMATION
  Report Type: Spontaneous
  Country: US (occurrence: None)
  Receive Date: 20130523
  Receipt Date: 20130523
  Transmission Date: 20140414
  Serious: No
  Sender: FDA-Public Use
  Company Number: None

PATIENT
  Age: 93 Year
  Sex: Male
  Weight: 54 kg

DRUGS (2)
  1. IPRATROPIUM [Suspect]
     Route: 055
     Dates: start: 20130419, end: 20130419
  2. ALBUTEROL SULFATE [Suspect]
     Route: 055
     Dates: start: 20130419, end: 20130419

REACTIONS (4)
  - Swollen tongue [None]
  - Rash [None]
  - Burning sensation [None]
  - Ear discomfort [None]
